FAERS Safety Report 18572216 (Version 2)
Quarter: 2020Q4

REPORT INFORMATION
  Report Type: Spontaneous
  Country: US (occurrence: US)
  Receive Date: 20201202
  Receipt Date: 20201223
  Transmission Date: 20210114
  Serious: Yes (Other)
  Sender: FDA-Public Use
  Company Number: US-PURDUE-USA-2020-0179151

PATIENT
  Sex: Male

DRUGS (1)
  1. OXYCONTIN [Suspect]
     Active Substance: OXYCODONE HYDROCHLORIDE
     Indication: INTERVERTEBRAL DISC OPERATION
     Dosage: 110 MG, UNK
     Route: 048

REACTIONS (11)
  - Drug withdrawal syndrome [Unknown]
  - Drug tolerance [Unknown]
  - Depression [Unknown]
  - Diarrhoea [Unknown]
  - Vomiting [Unknown]
  - Tremor [Unknown]
  - Hyperhidrosis [Unknown]
  - Pain [Unknown]
  - Spinal stenosis [Unknown]
  - Spinal operation [Unknown]
  - Drug dependence [Unknown]
